FAERS Safety Report 9429247 (Version 1)
Quarter: 2013Q3

REPORT INFORMATION
  Report Type: Spontaneous
  Country: US (occurrence: US)
  Receive Date: 20130730
  Receipt Date: 20130730
  Transmission Date: 20140515
  Serious: Yes (Hospitalization, Other)
  Sender: FDA-Public Use
  Company Number: US-GILEAD-2013-0080216

PATIENT
  Sex: Male

DRUGS (4)
  1. STRIBILD [Suspect]
     Indication: HIV INFECTION
  2. ZOLPIDEM [Interacting]
     Indication: INSOMNIA
  3. MARAVIROC [Concomitant]
  4. HYDROCODONE [Concomitant]
     Indication: NEUROPATHY PERIPHERAL

REACTIONS (5)
  - Amnesia [Unknown]
  - Syncope [Unknown]
  - Aggression [Unknown]
  - Convulsion [Unknown]
  - Drug interaction [Unknown]
